FAERS Safety Report 7402895-6 (Version None)
Quarter: 2011Q1

REPORT INFORMATION
  Report Type: 
  Country: None (occurrence: None)
  Receive Date: 20110331
  Receipt Date: 20110322
  Transmission Date: 20110831
  Serious: Yes (Hospitalization)
  Sender: FDA-Public Use
  Company Number: JPI-P-014291

PATIENT
  Age: 70 Year
  Sex: Female
  Weight: 70.7611 kg

DRUGS (15)
  1. XYREM [Suspect]
     Indication: INSOMNIA
     Dosage: 4.5 GM (2.25 GM,2 IN 1 D),ORAL
     Route: 048
     Dates: start: 20110317, end: 20110318
  2. OMEPRAZOLE [Concomitant]
  3. SYNTHROID [Concomitant]
  4. POTASSIUM CHLORIDE [Concomitant]
  5. LISINOPRIL [Concomitant]
  6. PROPOXYPHENE AND ACETOMINOPHEN [Concomitant]
  7. PROPRANOLOL [Concomitant]
  8. ROSUVASTATIN [Concomitant]
  9. FENOFIBRATE [Concomitant]
  10. ESTRADIOL [Concomitant]
  11. ACETYLSALICYLIC ACID SRT [Concomitant]
  12. ONDANSETRON [Concomitant]
  13. PROMETHAZINE [Concomitant]
  14. QUETIAPINE [Concomitant]
  15. MECLIZINE HYDROCHLORIDE [Concomitant]

REACTIONS (6)
  - TREMOR [None]
  - HYPERHIDROSIS [None]
  - NAUSEA [None]
  - HAEMATEMESIS [None]
  - VERTIGO [None]
  - DIZZINESS [None]
